FAERS Safety Report 7798550-3 (Version None)
Quarter: 2011Q4

REPORT INFORMATION
  Report Type: 
  Country: None (occurrence: None)
  Receive Date: 20111005
  Receipt Date: 20110929
  Transmission Date: 20120403
  Serious: Yes (Hospitalization)
  Sender: FDA-Public Use
  Company Number: US-AMGEN-STX292999

PATIENT
  Age: 60 Year
  Sex: Male

DRUGS (3)
  1. ETANERCEPT [Suspect]
     Indication: PSORIASIS
     Dosage: 50 MG, 2 TIMES/WK
     Route: 058
     Dates: start: 20060416, end: 20080116
  2. DILTIAZEM HCL [Concomitant]
  3. SOTALOL HYDROCHLORIDE [Concomitant]

REACTIONS (3)
  - CARDIAC FAILURE [None]
  - ATRIAL FIBRILLATION [None]
  - PANCYTOPENIA [None]
